FAERS Safety Report 6706091-7 (Version None)
Quarter: 2010Q2

REPORT INFORMATION
  Report Type: 
  Country: None (occurrence: None)
  Receive Date: 20100429
  Receipt Date: 20100416
  Transmission Date: 20101027
  Serious: Yes (Hospitalization)
  Sender: FDA-Public Use
  Company Number: 2010SCPR000571

PATIENT
  Age: 80 Year
  Sex: Female

DRUGS (3)
  1. HYDROXYUREA [Suspect]
     Indication: POLYCYTHAEMIA VERA
     Dosage: 500 MG, BID, ORAL
     Route: 048
     Dates: start: 20091104, end: 20100331
  2. PLAVIX [Concomitant]
  3. LIPITOR [Concomitant]

REACTIONS (1)
  - PALPITATIONS [None]
